FAERS Safety Report 22314876 (Version 1)
Quarter: 2023Q2

REPORT INFORMATION
  Report Type: Spontaneous
  Country: US (occurrence: None)
  Receive Date: 20230511
  Receipt Date: 20230511
  Transmission Date: 20230721
  Serious: Yes (Other)
  Sender: FDA-Public Use
  Company Number: None

PATIENT
  Age: 67 Year
  Sex: Male
  Weight: 99 kg

DRUGS (1)
  1. OFLOXACIN [Suspect]
     Active Substance: OFLOXACIN
     Indication: Ear infection
     Dosage: 10 AURICULAR (OTIC)?
     Route: 001
     Dates: start: 20230109, end: 20230120

REACTIONS (3)
  - Deafness [None]
  - Ear infection [None]
  - Condition aggravated [None]

NARRATIVE: CASE EVENT DATE: 20230420
